FAERS Safety Report 19890262 (Version 3)
Quarter: 2021Q4

REPORT INFORMATION
  Report Type: Report from Study
  Country: ES (occurrence: None)
  Receive Date: 20210928
  Receipt Date: 20211221
  Transmission Date: 20220303
  Serious: Yes (Death, Other)
  Sender: FDA-Public Use
  Company Number: ES-ROCHE-2913058

PATIENT

DRUGS (42)
  1. TOCILIZUMAB [Suspect]
     Active Substance: TOCILIZUMAB
     Indication: COVID-19 pneumonia
     Route: 042
     Dates: start: 20200324
  2. CEFTRIAXONE [Concomitant]
     Active Substance: CEFTRIAXONE
     Dosage: SUSPECTED BACTERIAL AIRWAY INFECTION
     Dates: start: 20200421, end: 20200428
  3. ENOXAPARIN [Concomitant]
     Active Substance: ENOXAPARIN
     Indication: Thrombosis prophylaxis
     Dates: start: 20200421, end: 20200505
  4. LOPINAVIR\RITONAVIR [Concomitant]
     Active Substance: LOPINAVIR\RITONAVIR
     Indication: COVID-19 treatment
     Dates: start: 20200421, end: 20200428
  5. HYDROXYCHLOROQUINE [Concomitant]
     Active Substance: HYDROXYCHLOROQUINE
     Indication: COVID-19 treatment
     Dates: start: 20200422, end: 20200426
  6. BUDESONIDE [Concomitant]
     Active Substance: BUDESONIDE
     Indication: COVID-19
     Dates: start: 20200425, end: 20200505
  7. IPRATROPIUM BROMIDE [Concomitant]
     Active Substance: IPRATROPIUM BROMIDE
     Indication: COVID-19
     Dates: start: 20200425, end: 20200505
  8. LORMETAZEPAM [Concomitant]
     Active Substance: LORMETAZEPAM
     Indication: Schizophrenia
     Dates: start: 20200421, end: 20210505
  9. ACETAMINOPHEN [Concomitant]
     Active Substance: ACETAMINOPHEN
     Indication: COVID-19
     Dates: start: 20200423, end: 20200428
  10. ALBUTEROL [Concomitant]
     Active Substance: ALBUTEROL
     Indication: COVID-19
     Dates: start: 20200423, end: 20200505
  11. OMEPRAZOLE [Concomitant]
     Active Substance: OMEPRAZOLE
     Indication: Prophylaxis against gastrointestinal ulcer
     Dates: start: 20200424, end: 20200506
  12. METHYLPREDNISOLONE [Concomitant]
     Active Substance: METHYLPREDNISOLONE
     Indication: COVID-19
     Dates: start: 20200424, end: 20200427
  13. OLANZAPINE [Concomitant]
     Active Substance: OLANZAPINE
     Indication: Schizophrenia
     Dates: start: 20200421, end: 20200505
  14. INSULIN NOS [Concomitant]
     Active Substance: INSULIN NOS
     Indication: Hyperglycaemia
     Dates: start: 20200427, end: 20200505
  15. LINEZOLID [Concomitant]
     Active Substance: LINEZOLID
     Indication: Abdominal sepsis
     Dates: start: 20200505, end: 20200513
  16. MEROPENEM [Concomitant]
     Active Substance: MEROPENEM
     Indication: Abdominal sepsis
     Dates: start: 20200505, end: 20200521
  17. AMIKACIN [Concomitant]
     Active Substance: AMIKACIN
     Indication: Abdominal sepsis
     Dates: start: 20200505, end: 20200511
  18. VORICONAZOLE [Concomitant]
     Active Substance: VORICONAZOLE
     Indication: Bronchopulmonary aspergillosis
     Dates: start: 20200518, end: 20200519
  19. DAPTOMYCIN [Concomitant]
     Active Substance: DAPTOMYCIN
     Indication: Abdominal sepsis
     Dates: start: 20200513, end: 20200521
  20. CASPOFUNGIN [Concomitant]
     Active Substance: CASPOFUNGIN
     Indication: Systemic candida
     Dates: start: 20200510, end: 20200521
  21. ACETYLCYSTEINE [Concomitant]
     Active Substance: ACETYLCYSTEINE
     Dosage: AIRWAYS SECRETIONS
     Dates: start: 20200505, end: 20200521
  22. SOMATOSTATIN [Concomitant]
     Active Substance: SOMATOSTATIN
     Dosage: ABDOMINAL SECRETIONS CONTROL
     Dates: start: 20200505, end: 20200512
  23. TERLIPRESSIN [Concomitant]
     Active Substance: TERLIPRESSIN
     Indication: Haemodynamic instability
     Dates: start: 20200509, end: 20200513
  24. HEPARIN SODIUM [Concomitant]
     Active Substance: HEPARIN SODIUM
     Indication: Thrombosis mesenteric vessel
     Dates: start: 20200505, end: 20200507
  25. DOBUTAMINE [Concomitant]
     Active Substance: DOBUTAMINE HYDROCHLORIDE
     Indication: Haemodynamic instability
     Dates: start: 20200506, end: 20200514
  26. NOREPINEPHRINE [Concomitant]
     Active Substance: NOREPINEPHRINE
     Indication: Haemodynamic instability
     Dates: start: 20200506, end: 20200521
  27. MIDAZOLAM [Concomitant]
     Active Substance: MIDAZOLAM
     Indication: Sedation
     Dates: start: 20200506, end: 20200514
  28. FENTANYL [Concomitant]
     Active Substance: FENTANYL
     Indication: Sedation
     Dates: start: 20200506, end: 20200521
  29. CALCIUM CHLORIDE [Concomitant]
     Active Substance: CALCIUM CHLORIDE
     Indication: Hypocalcaemia
     Dates: start: 20200506, end: 20200521
  30. ESOMEPRAZOLE [Concomitant]
     Active Substance: ESOMEPRAZOLE
     Indication: Prophylaxis against gastrointestinal ulcer
     Dates: start: 20200506, end: 20200521
  31. HYDROCORTISONE [Concomitant]
     Active Substance: HYDROCORTISONE
     Dosage: SUSPECTED ADRENAL INSUFFICIENCY PROPHYLAXIS
     Dates: start: 20200506, end: 20200515
  32. FONDAPARINUX [Concomitant]
     Active Substance: FONDAPARINUX
     Indication: Thrombosis mesenteric vessel
     Dates: start: 20200507, end: 20200518
  33. THIAMINE [Concomitant]
     Active Substance: THIAMINE
     Dosage: NUTRITION
     Dates: start: 20200508, end: 20200518
  34. POTASSIUM PHOSPHATE, MONOBASIC [Concomitant]
     Active Substance: POTASSIUM PHOSPHATE, MONOBASIC
     Indication: Hypophosphataemia
     Dates: start: 20200509, end: 20200520
  35. ALBUMIN HUMAN [Concomitant]
     Active Substance: ALBUMIN HUMAN
     Dosage: FLUID BALANCE
     Dates: start: 20200509, end: 20200521
  36. MORPHINE [Concomitant]
     Active Substance: MORPHINE
     Indication: Sedation
     Dates: start: 20200511, end: 20200521
  37. MESNA [Concomitant]
     Active Substance: MESNA
     Dosage: AIRWAY SECRETIONS
     Dates: start: 20200511, end: 20200521
  38. FUROSEMIDE [Concomitant]
     Active Substance: FUROSEMIDE
     Dosage: FLUID BALANCE
     Dates: start: 20200511, end: 20200521
  39. MAGNESIUM SULFATE [Concomitant]
     Active Substance: MAGNESIUM SULFATE
     Indication: Hypomagnesaemia
     Dates: start: 20200511, end: 20200520
  40. DEXMEDETOMIDINE [Concomitant]
     Active Substance: DEXMEDETOMIDINE
     Indication: Sedation
     Dates: start: 20200515, end: 20200520
  41. PANTOMYCIN [Concomitant]
     Indication: Ileus
     Dates: start: 20200519, end: 20200521
  42. HUMAN RED BLOOD CELL [Concomitant]
     Active Substance: HUMAN RED BLOOD CELL
     Indication: Anaemia
     Dates: start: 20200510, end: 20200519

REACTIONS (6)
  - Thrombosis mesenteric vessel [Fatal]
  - Abdominal sepsis [Fatal]
  - Bronchopulmonary aspergillosis [Not Recovered/Not Resolved]
  - Systemic candida [Not Recovered/Not Resolved]
  - Ileus [Not Recovered/Not Resolved]
  - Thrombocytopenia [Not Recovered/Not Resolved]

NARRATIVE: CASE EVENT DATE: 20200505
